FAERS Safety Report 9929110 (Version 3)
Quarter: 2014Q1

REPORT INFORMATION
  Report Type: Report from Study
  Country: JP (occurrence: JP)
  Receive Date: 20140227
  Receipt Date: 20140320
  Transmission Date: 20141002
  Serious: Yes (Other)
  Sender: FDA-Public Use
  Company Number: JP-B.I. PHARMACEUTICALS,INC./RIDGEFIELD-2014-BI-08057BI

PATIENT
  Age: 51 Year
  Sex: Female
  Weight: 51.5 kg

DRUGS (6)
  1. BIBW 2992 [Suspect]
     Indication: LUNG ADENOCARCINOMA
     Dosage: 20 MG
     Route: 065
     Dates: start: 20100810, end: 20140109
  2. DIOVAN [Concomitant]
     Indication: HYPERTENSION
     Dosage: 80 MG
     Route: 048
     Dates: start: 20110624
  3. PANVITAN [Concomitant]
     Indication: PREMEDICATION
     Dosage: 1 G
     Route: 048
     Dates: start: 20140205
  4. MYSER CREAM [Concomitant]
     Indication: RASH
     Dosage: ROUTE: SKIN
     Dates: start: 20100817
  5. DIFFERIN GEL [Concomitant]
     Indication: RASH
     Dosage: ROUTE: SKIN
     Dates: start: 20120830
  6. LIDOMEX KOWA CREAM [Concomitant]
     Indication: RASH
     Dosage: ROUTE: SKIN
     Dates: start: 20100817

REACTIONS (1)
  - Colon cancer [Recovered/Resolved]
